FAERS Safety Report 5376806-1 (Version None)
Quarter: 2007Q3

REPORT INFORMATION
  Report Type: 
  Country: None (occurrence: None)
  Receive Date: 20070703
  Receipt Date: 20070626
  Transmission Date: 20080115
  Serious: Yes (Hospitalization)
  Sender: FDA-Public Use
  Company Number: PHBS2007BR10914

PATIENT
  Sex: Male
  Weight: 95 kg

DRUGS (3)
  1. STARFORM [Suspect]
     Indication: DIABETES MELLITUS
     Dosage: NATE 120 / METFOR 850 MG/DAY
     Route: 048
  2. DIOVAN AMLO [Suspect]
     Dosage: VALS 160 / AMLO 5 MG/DAY
     Route: 048
  3. INFLUENZA VIRUS VACCINE [Suspect]
     Dates: start: 20070401

REACTIONS (2)
  - AORTIC SURGERY [None]
  - PNEUMONIA [None]
